FAERS Safety Report 13954594 (Version 1)
Quarter: 2017Q3

REPORT INFORMATION
  Report Type: Report from Study
  Country: US (occurrence: US)
  Receive Date: 20170911
  Receipt Date: 20170911
  Transmission Date: 20171128
  Serious: Yes (Other)
  Sender: FDA-Public Use
  Company Number: US-BAYER-2017-170370

PATIENT

DRUGS (2)
  1. TIROFIBAN [Interacting]
     Active Substance: TIROFIBAN
     Indication: ANTIPLATELET THERAPY
     Dosage: 0.05 ?G/KG, Q1MIN
     Route: 042
  2. ASPIRIN. [Suspect]
     Active Substance: ASPIRIN
     Indication: ANTIPLATELET THERAPY
     Dosage: UNK

REACTIONS (3)
  - Respiratory tract haemorrhage [None]
  - Drug administration error [None]
  - Labelled drug-drug interaction medication error [None]
